FAERS Safety Report 8845838 (Version 1)
Quarter: 2012Q4

REPORT INFORMATION
  Report Type: 
  Country: US (occurrence: US)
  Receive Date: 20121017
  Receipt Date: 20121017
  Transmission Date: 20130627
  Serious: No
  Sender: FDA-Public Use
  Company Number: US-ASTRAZENECA-2012SE75520

PATIENT
  Sex: Male

DRUGS (3)
  1. SYMBICORT PMDI [Suspect]
     Indication: ASTHMA
     Dosage: 160-4.5 MCG, TWO TIMES A DAY
     Route: 055
  2. SYMBICORT PMDI [Suspect]
     Indication: ASTHMA
     Dosage: 160-4.5 MCG, ONE TIME  (2 PUFFS)
     Route: 055
  3. NASONEX [Concomitant]

REACTIONS (3)
  - Asthma [Unknown]
  - Activities of daily living impaired [Unknown]
  - Intentional drug misuse [Unknown]
